FAERS Safety Report 25840921 (Version 1)
Quarter: 2025Q3

REPORT INFORMATION
  Report Type: Spontaneous
  Country: US (occurrence: None)
  Receive Date: 20250923
  Receipt Date: 20250923
  Transmission Date: 20251020
  Serious: Yes (Other)
  Sender: FDA-CTU
  Company Number: None

PATIENT
  Age: 32 Year
  Sex: Male

DRUGS (3)
  1. AUGMENTIN [Suspect]
     Active Substance: AMOXICILLIN\CLAVULANATE POTASSIUM
     Indication: Rectal abscess
     Dosage: OTHER QUANTITY : 1 TABLET(S);?FREQUENCY : EVERY 12 HOURS;?
     Route: 048
     Dates: start: 20240724, end: 20240725
  2. PROCTOZONE HC [Suspect]
     Active Substance: HYDROCORTISONE
  3. smoking and alcohol IN EARLY REMISSION [Concomitant]

REACTIONS (5)
  - Diarrhoea haemorrhagic [None]
  - Fatigue [None]
  - Asthenia [None]
  - Somnolence [None]
  - Balance disorder [None]

NARRATIVE: CASE EVENT DATE: 20240724
